FAERS Safety Report 18972109 (Version 1)
Quarter: 2021Q1

REPORT INFORMATION
  Report Type: Spontaneous
  Country: CA (occurrence: CA)
  Receive Date: 20210305
  Receipt Date: 20210305
  Transmission Date: 20210420
  Serious: Yes (Other)
  Sender: FDA-Public Use
  Company Number: CA-ASTRAZENECA-2020SF43717

PATIENT
  Age: 63 Year
  Sex: Male

DRUGS (3)
  1. BRILINTA [Suspect]
     Active Substance: TICAGRELOR
     Indication: STENT PLACEMENT
     Route: 048
     Dates: start: 20201009, end: 20201030
  2. BRILINTA [Suspect]
     Active Substance: TICAGRELOR
     Indication: ANGIOGRAM
     Route: 048
     Dates: start: 20201009, end: 20201030
  3. BRILINTA [Suspect]
     Active Substance: TICAGRELOR
     Indication: THROMBOSIS
     Route: 048
     Dates: start: 20201009, end: 20201030

REACTIONS (7)
  - Headache [Recovered/Resolved]
  - Chromaturia [Unknown]
  - Diarrhoea [Unknown]
  - Nightmare [Unknown]
  - Insomnia [Unknown]
  - Vomiting [Recovered/Resolved]
  - Dizziness [Recovered/Resolved]

NARRATIVE: CASE EVENT DATE: 20201029
